FAERS Safety Report 15226658 (Version 1)
Quarter: 2018Q3

REPORT INFORMATION
  Report Type: Spontaneous
  Country: US (occurrence: US)
  Receive Date: 20180705
  Receipt Date: 20180705
  Transmission Date: 20181010
  Serious: Yes (Hospitalization)
  Sender: FDA-Public Use
  Company Number: None

PATIENT
  Age: 79 Year
  Sex: Male

DRUGS (10)
  1. NITROFURANTIN [Concomitant]
     Active Substance: NITROFURANTOIN
  2. TAMSULOSIN [Concomitant]
     Active Substance: TAMSULOSIN
  3. POT CITRATE [Concomitant]
     Active Substance: POTASSIUM CITRATE
  4. ALLOPURINOL. [Concomitant]
     Active Substance: ALLOPURINOL
  5. 3M SYRINGE MIS [Concomitant]
  6. SMZ/TMP DS [Concomitant]
     Active Substance: SULFAMETHOXAZOLE\TRIMETHOPRIM
  7. ESBRIET [Suspect]
     Active Substance: PIRFENIDONE
     Indication: IDIOPATHIC PULMONARY FIBROSIS
     Route: 048
     Dates: start: 20151006
  8. GEMFIBROZIL. [Concomitant]
     Active Substance: GEMFIBROZIL
  9. FERROCITE [Concomitant]
     Active Substance: FERROUS FUMARATE
  10. METHOTREXATE. [Concomitant]
     Active Substance: METHOTREXATE

REACTIONS (3)
  - Traumatic lung injury [None]
  - Pneumothorax [None]
  - Fall [None]
